FAERS Safety Report 6479813-0 (Version None)
Quarter: 2009Q4

REPORT INFORMATION
  Report Type: 
  Country: None (occurrence: None)
  Receive Date: 20091202
  Receipt Date: 20091117
  Transmission Date: 20100525
  Serious: Yes (Hospitalization)
  Sender: FDA-Public Use
  Company Number: 002460

PATIENT
  Age: 70 Year
  Sex: Female

DRUGS (3)
  1. NEUPRO [Suspect]
     Indication: PARKINSON'S DISEASE
     Dosage: (TRANSDERMAL)
     Route: 062
  2. MADOPAR /00349201/ [Concomitant]
  3. DOPAMINERGIC AGENTS [Concomitant]

REACTIONS (3)
  - CARDIAC FAILURE [None]
  - DYSPNOEA [None]
  - JOINT SWELLING [None]
